FAERS Safety Report 5078244-8 (Version None)
Quarter: 2006Q3

REPORT INFORMATION
  Report Type: 
  Country: None (occurrence: None)
  Receive Date: 20060811
  Receipt Date: 20060713
  Transmission Date: 20061208
  Serious: Yes (Other)
  Sender: FDA-Public Use
  Company Number: US-ROCHE-455252

PATIENT
  Age: 56 Year
  Sex: Female
  Weight: 76.2 kg

DRUGS (11)
  1. CAPECITABINE [Suspect]
     Indication: BREAST CANCER
     Dosage: FOR 14 DAYS
     Route: 048
     Dates: start: 20060614, end: 20060621
  2. HERCEPTIN [Suspect]
     Indication: BREAST CANCER
     Route: 042
     Dates: start: 20060613, end: 20060621
  3. DOCETAXEL [Suspect]
     Indication: BREAST CANCER
     Route: 042
     Dates: start: 20060614, end: 20060621
  4. ACETAMINOPHEN [Concomitant]
     Dates: start: 20060613, end: 20060613
  5. ANZEMET [Concomitant]
     Dates: start: 20060614
  6. DECADRON [Concomitant]
     Dates: start: 20060614
  7. BENADRYL [Concomitant]
     Dates: start: 20060614, end: 20060614
  8. PERCOCET [Concomitant]
     Dates: start: 20060613
  9. KEFLEX [Concomitant]
     Dates: start: 20060613, end: 20060623
  10. HYDROCHLOROTHIAZIDE [Concomitant]
     Dates: start: 20060613
  11. AVACOR [Concomitant]
     Dates: start: 20060613

REACTIONS (1)
  - NEUTROPENIA [None]
